FAERS Safety Report 21236517 (Version 1)
Quarter: 2022Q3

REPORT INFORMATION
  Report Type: Spontaneous
  Country: US (occurrence: US)
  Receive Date: 20220822
  Receipt Date: 20220822
  Transmission Date: 20221026
  Serious: No
  Sender: FDA-Public Use
  Company Number: US-Accord-239031

PATIENT
  Age: 74 Year
  Sex: Female
  Weight: 76.66 kg

DRUGS (2)
  1. ANASTROZOLE [Suspect]
     Active Substance: ANASTROZOLE
     Indication: Oestrogen therapy
     Dosage: STRENGTH: 1MG , DAILY
  2. ALENDRONATE SODIUM [Concomitant]
     Active Substance: ALENDRONATE SODIUM

REACTIONS (4)
  - Skin atrophy [Not Recovered/Not Resolved]
  - Hypotonia [Not Recovered/Not Resolved]
  - Alopecia [Not Recovered/Not Resolved]
  - Crepitations [Not Recovered/Not Resolved]
